FAERS Safety Report 18523384 (Version 6)
Quarter: 2021Q4

REPORT INFORMATION
  Report Type: Spontaneous
  Country: US (occurrence: US)
  Receive Date: 20201119
  Receipt Date: 20211111
  Transmission Date: 20220303
  Serious: No
  Sender: FDA-Public Use
  Company Number: US-PFIZER INC-2016309148

PATIENT
  Age: 88 Year
  Sex: Female
  Weight: 57 kg

DRUGS (4)
  1. LYRICA [Suspect]
     Active Substance: PREGABALIN
     Indication: Pain
     Dosage: 150 MG, 1X/DAY (EVERY NIGHT AT BEDTIME, QHS)
     Route: 048
  2. LYRICA [Suspect]
     Active Substance: PREGABALIN
     Indication: Back pain
     Dosage: 150 MG, 3X/DAY
     Route: 048
  3. LYRICA [Suspect]
     Active Substance: PREGABALIN
     Indication: Spinal pain
     Dosage: UNK, 2X/DAY
  4. LYRICA [Suspect]
     Active Substance: PREGABALIN
     Indication: Neuropathy peripheral

REACTIONS (7)
  - Therapeutic product effect incomplete [Unknown]
  - Intentional product misuse [Unknown]
  - Product dispensing error [Unknown]
  - Pain [Not Recovered/Not Resolved]
  - Gait disturbance [Unknown]
  - Insomnia [Unknown]
  - Burning sensation [Unknown]
